FAERS Safety Report 6312278-8 (Version None)
Quarter: 2009Q3

REPORT INFORMATION
  Report Type: 
  Country: None (occurrence: None)
  Receive Date: 20090813
  Receipt Date: 20090803
  Transmission Date: 20100115
  Serious: Yes (Other)
  Sender: FDA-Public Use
  Company Number: 2009-200332-NL

PATIENT
  Age: 71 Year
  Sex: Female

DRUGS (1)
  1. MIRTAZAPINE [Suspect]
     Indication: DEPRESSION
     Dosage: 30 MG; QD
     Dates: start: 20090101

REACTIONS (6)
  - DEPRESSED MOOD [None]
  - FATIGUE [None]
  - LISTLESS [None]
  - SKIN BURNING SENSATION [None]
  - VISUAL IMPAIRMENT [None]
  - WEIGHT INCREASED [None]
